FAERS Safety Report 17736718 (Version 2)
Quarter: 2020Q2

REPORT INFORMATION
  Report Type: Spontaneous
  Country: PT (occurrence: PT)
  Receive Date: 20200501
  Receipt Date: 20200508
  Transmission Date: 20200714
  Serious: Yes (Other)
  Sender: FDA-Public Use
  Company Number: PT-AUROBINDO-AUR-APL-2020-020681

PATIENT
  Age: 25 Year
  Sex: Male

DRUGS (7)
  1. IBUPROFEN. [Suspect]
     Active Substance: IBUPROFEN
     Indication: PERICARDIAL EFFUSION
     Dosage: UNK
     Route: 065
  2. ADENOSINE. [Suspect]
     Active Substance: ADENOSINE
     Indication: TACHYCARDIA
     Dosage: UNK
     Route: 065
  3. IBUPROFEN. [Suspect]
     Active Substance: IBUPROFEN
     Indication: PLEURITIC PAIN
  4. DOXYCYCLINE. [Suspect]
     Active Substance: DOXYCYCLINE
     Indication: PLEURITIC PAIN
     Dosage: UNK (FOR 21 DAYS)
     Route: 065
  5. COLCHICINE. [Suspect]
     Active Substance: COLCHICINE
     Indication: PLEURITIC PAIN
     Dosage: UNK
     Route: 065
  6. COLCHICINE. [Suspect]
     Active Substance: COLCHICINE
     Indication: PERICARDIAL EFFUSION
  7. DOXYCYCLINE. [Suspect]
     Active Substance: DOXYCYCLINE
     Indication: PERICARDIAL EFFUSION

REACTIONS (1)
  - Drug ineffective [Unknown]
